FAERS Safety Report 13925500 (Version 2)
Quarter: 2018Q1

REPORT INFORMATION
  Report Type: Spontaneous
  Country: CA (occurrence: CA)
  Receive Date: 20170831
  Receipt Date: 20180126
  Transmission Date: 20180508
  Serious: Yes (Other)
  Sender: FDA-Public Use
  Company Number: CA-AKORN PHARMACEUTICALS-2017AKN01034

PATIENT
  Sex: Female

DRUGS (1)
  1. MYORISAN [Suspect]
     Active Substance: ISOTRETINOIN
     Dosage: 1 DOSAGE UNITS, ONCE

REACTIONS (1)
  - Exposure during pregnancy [Unknown]
